FAERS Safety Report 11888519 (Version 1)
Quarter: 2016Q1

REPORT INFORMATION
  Report Type: Spontaneous
  Country: FR (occurrence: FR)
  Receive Date: 20160105
  Receipt Date: 20160105
  Transmission Date: 20160526
  Serious: Yes (Hospitalization, Other)
  Sender: FDA-Public Use
  Company Number: FR-009507513-1601FRA000401

PATIENT
  Age: 38 Year
  Sex: Female
  Weight: 55 kg

DRUGS (13)
  1. SUSTIVA [Suspect]
     Active Substance: EFAVIRENZ
     Dosage: 600 MG, UNK
     Route: 048
     Dates: end: 20001102
  2. PRO-DAFALGAN [Concomitant]
     Indication: PYELONEPHRITIS
     Dosage: 2000 MG, UNK
     Route: 048
     Dates: start: 200106, end: 200106
  3. STAVUDINE. [Suspect]
     Active Substance: STAVUDINE
     Indication: HIV INFECTION
     Dosage: UNK
  4. COMBIVIR [Suspect]
     Active Substance: LAMIVUDINE\ZIDOVUDINE
     Indication: HIV INFECTION
     Dosage: 1 DF, QD
     Route: 048
     Dates: start: 20001102
  5. ZIAGEN [Suspect]
     Active Substance: ABACAVIR SULFATE
     Indication: HIV INFECTION
     Dosage: UNK
     Route: 048
     Dates: start: 20001102, end: 20010430
  6. ROCEPHIN [Concomitant]
     Active Substance: CEFTRIAXONE SODIUM
     Indication: PYELONEPHRITIS
     Dosage: 2000 MG, UNK
     Dates: start: 200106, end: 200106
  7. NEVIRAPINE. [Concomitant]
     Active Substance: NEVIRAPINE
     Indication: PROPHYLAXIS AGAINST HIV INFECTION
     Route: 048
     Dates: start: 20010616
  8. CRIXIVAN [Suspect]
     Active Substance: INDINAVIR SULFATE
     Route: 048
  9. ZIDOVUDINE. [Suspect]
     Active Substance: ZIDOVUDINE
     Indication: HIV INFECTION
     Dosage: 600 MG, UNK
     Route: 048
     Dates: start: 20010430
  10. CRIXIVAN [Suspect]
     Active Substance: INDINAVIR SULFATE
     Indication: HIV INFECTION
     Dosage: UNK UNK, BID
     Route: 048
     Dates: start: 20010430
  11. SUSTIVA [Suspect]
     Active Substance: EFAVIRENZ
     Indication: HIV INFECTION
     Dosage: UNK MG, UNK
     Route: 048
     Dates: start: 20010430
  12. LAMIVUDINE. [Suspect]
     Active Substance: LAMIVUDINE
     Indication: HIV INFECTION
     Dosage: UNK UNK, QD
     Route: 048
     Dates: end: 20001102
  13. RITONAVIR. [Suspect]
     Active Substance: RITONAVIR
     Indication: HIV INFECTION
     Dosage: UNK UNK, BID
     Route: 048
     Dates: start: 20010430

REACTIONS (9)
  - Pyelonephritis [Recovered/Resolved]
  - Pyrexia [Unknown]
  - Caesarean section [Unknown]
  - Escherichia pyelonephritis [Unknown]
  - Bradycardia [Recovered/Resolved]
  - Live birth [Unknown]
  - Pregnancy [Unknown]
  - Exposure during pregnancy [Recovered/Resolved]
  - Lipodystrophy acquired [Recovered/Resolved]

NARRATIVE: CASE EVENT DATE: 20010430
